FAERS Safety Report 11572976 (Version 1)
Quarter: 2015Q3

REPORT INFORMATION
  Report Type: Spontaneous
  Country: GB (occurrence: GB)
  Receive Date: 20150929
  Receipt Date: 20150929
  Transmission Date: 20151125
  Serious: Yes (Hospitalization, Other)
  Sender: FDA-Public Use
  Company Number: GB-UCBSA-2015030418

PATIENT
  Sex: Female

DRUGS (2)
  1. KEPPRA [Suspect]
     Active Substance: LEVETIRACETAM
     Indication: EPILEPSY
     Dosage: 250 MG, 2X/DAY (BID)
  2. CARBAMAZEPINE. [Concomitant]
     Active Substance: CARBAMAZEPINE
     Indication: EPILEPSY
     Dosage: UNK

REACTIONS (9)
  - Seizure [Unknown]
  - Adverse drug reaction [Unknown]
  - Drug withdrawal convulsions [Unknown]
  - Coma [Unknown]
  - Amnesia [Unknown]
  - Stress [Unknown]
  - Aggression [Unknown]
  - Anxiety [Unknown]
  - Mood swings [Unknown]
